FAERS Safety Report 13495094 (Version 2)
Quarter: 2017Q2

REPORT INFORMATION
  Report Type: Spontaneous
  Country: US (occurrence: US)
  Receive Date: 20170428
  Receipt Date: 20170502
  Transmission Date: 20170830
  Serious: No
  Sender: FDA-Public Use
  Company Number: US-BAYER-2017-081503

PATIENT
  Age: 68 Year
  Sex: Male
  Weight: 77.1 kg

DRUGS (1)
  1. ALEVE PM [Suspect]
     Active Substance: DIPHENHYDRAMINE HYDROCHLORIDE\NAPROXEN SODIUM
     Dosage: 2 TABLETS ONE TIME
     Route: 048
     Dates: end: 201704

REACTIONS (2)
  - Insomnia [Unknown]
  - Expired product administered [Unknown]

NARRATIVE: CASE EVENT DATE: 201704
